FAERS Safety Report 5040418-X (Version None)
Quarter: 2006Q2

REPORT INFORMATION
  Report Type: 
  Country: None (occurrence: None)
  Receive Date: 20060630
  Receipt Date: 20060621
  Transmission Date: 20061013
  Serious: Yes (Hospitalization)
  Sender: FDA-Public Use
  Company Number: DE-GLAXOSMITHKLINE-B0428965A

PATIENT
  Age: 74 Year
  Sex: Male
  Weight: 85 kg

DRUGS (8)
  1. TOPOTECAN [Suspect]
     Indication: SMALL CELL LUNG CANCER STAGE UNSPECIFIED
     Dosage: 1MGM2 PER DAY
     Route: 042
     Dates: start: 20060512, end: 20060516
  2. CISPLATIN [Suspect]
     Indication: SMALL CELL LUNG CANCER STAGE UNSPECIFIED
     Dosage: 75MGM2 PER DAY
     Dates: start: 20060516
  3. FENTANYL TRANSDERMAL SYSTEM [Concomitant]
  4. CAPTOPRIL [Concomitant]
  5. PRAVASTATIN [Concomitant]
  6. THEOPHYLLINE [Concomitant]
  7. ALLOPURINOL [Concomitant]
  8. MULTI-VITAMIN [Concomitant]

REACTIONS (5)
  - ASTHENIA [None]
  - COUGH [None]
  - GENERAL PHYSICAL HEALTH DETERIORATION [None]
  - PRODUCTIVE COUGH [None]
  - PYREXIA [None]
